FAERS Safety Report 5280133-0 (Version None)
Quarter: 2007Q1

REPORT INFORMATION
  Report Type: 
  Country: None (occurrence: None)
  Receive Date: 20070329
  Receipt Date: 20070314
  Transmission Date: 20070707
  Serious: Yes (Other)
  Sender: FDA-Public Use
  Company Number: NLWYE060616MAR07

PATIENT
  Sex: Male

DRUGS (3)
  1. EFFEXOR [Suspect]
     Indication: DEPRESSION
     Route: 048
     Dates: start: 20050610, end: 20050613
  2. EFFEXOR [Suspect]
     Route: 048
     Dates: start: 20050614, end: 20050623
  3. EFFEXOR [Suspect]
     Route: 048
     Dates: start: 20050624, end: 20050707

REACTIONS (2)
  - DIZZINESS [None]
  - FALL [None]
